FAERS Safety Report 21512484 (Version 1)
Quarter: 2022Q4

REPORT INFORMATION
  Report Type: Spontaneous
  Country: DE (occurrence: DE)
  Receive Date: 20221027
  Receipt Date: 20221027
  Transmission Date: 20230113
  Serious: Yes (Hospitalization)
  Sender: FDA-Public Use
  Company Number: DE-STRIDES ARCOLAB LIMITED-2022SP014107

PATIENT
  Age: 16 Year
  Sex: Female

DRUGS (7)
  1. METRONIDAZOLE [Suspect]
     Active Substance: METRONIDAZOLE
     Indication: Peritonitis
     Dosage: UNK,ANTIBIOTIC THERAPY WAS CHANGED
     Route: 065
  2. VANCOMYCIN [Suspect]
     Active Substance: VANCOMYCIN
     Indication: Peritonitis
     Dosage: UNK,ANTIBIOTIC THERAPY WAS CHANGED
     Route: 065
  3. MEROPENEM [Suspect]
     Active Substance: MEROPENEM
     Indication: Peritonitis
     Dosage: UNK
     Route: 065
  4. DIPYRONE [Suspect]
     Active Substance: DIPYRONE
     Indication: Procedural pain
     Dosage: 125 MILLIGRAM, EVERY HOUR, 125 MG/H (RELATIVE DAILY DOSE WAS 60.0 MG/KG), INTRAVENOUS INFUSION
     Route: 042
  5. DIPYRONE [Suspect]
     Active Substance: DIPYRONE
     Dosage: UNK,RESUMED FOR 11 DAYS
     Route: 042
  6. CEFOTAXIME [Concomitant]
     Active Substance: CEFOTAXIME SODIUM
     Indication: Peritonitis
     Dosage: UNK,ANTIBIOTIC THERAPY WAS CHANGED
     Route: 065
  7. CLINDAMYCIN [Concomitant]
     Active Substance: CLINDAMYCIN
     Indication: Peritonitis
     Dosage: UNK
     Route: 065

REACTIONS (1)
  - Agranulocytosis [Recovered/Resolved]
